FAERS Safety Report 10335784 (Version 1)
Quarter: 2014Q3

REPORT INFORMATION
  Report Type: Spontaneous
  Country: US (occurrence: US)
  Receive Date: 20140723
  Receipt Date: 20140723
  Transmission Date: 20150326
  Serious: Yes (Hospitalization)
  Sender: FDA-Public Use
  Company Number: US-UNITED THERAPEUTICS-UTC-048327

PATIENT
  Age: 35 Year
  Sex: Female
  Weight: 84.3 kg

DRUGS (4)
  1. COUMADIN [Concomitant]
     Active Substance: WARFARIN SODIUM
  2. REMODULIN [Suspect]
     Active Substance: TREPROSTINIL
     Route: 058
     Dates: start: 20100909
  3. TRACLEER [Concomitant]
     Active Substance: BOSENTAN\BOSENTAN MONOHYDRATE
  4. ADCIRCA [Concomitant]
     Active Substance: TADALAFIL

REACTIONS (1)
  - Infusion site infection [Not Recovered/Not Resolved]

NARRATIVE: CASE EVENT DATE: 20140428
